FAERS Safety Report 5755435-1 (Version None)
Quarter: 2008Q2

REPORT INFORMATION
  Report Type: 
  Country: None (occurrence: None)
  Receive Date: 20080529
  Receipt Date: 20080529
  Transmission Date: 20081010
  Serious: No
  Sender: FDA-Public Use
  Company Number: None

PATIENT
  Age: 42 Year
  Sex: Male
  Weight: 108.8633 kg

DRUGS (2)
  1. PHENDIMETRAZINE [Suspect]
     Indication: WEIGHT DECREASED
     Dosage: 42 PILLS - 6 EACH DAY-  3 TIMES A DAY
     Dates: start: 20080301, end: 20080523
  2. PHENDIMETRAZINE [Suspect]

REACTIONS (2)
  - DRUG DISPENSING ERROR [None]
  - ECONOMIC PROBLEM [None]
